FAERS Safety Report 18790382 (Version 1)
Quarter: 2021Q1

REPORT INFORMATION
  Report Type: Spontaneous
  Country: ES (occurrence: ES)
  Receive Date: 20210126
  Receipt Date: 20210126
  Transmission Date: 20210419
  Serious: Yes (Death, Hospitalization, Other)
  Sender: FDA-Public Use
  Company Number: ES-JAZZ-2020-ES-017155

PATIENT
  Age: 49 Year
  Sex: Male

DRUGS (1)
  1. VYXEOS [Suspect]
     Active Substance: CYTARABINE\DAUNORUBICIN
     Indication: ACUTE MYELOID LEUKAEMIA
     Dosage: 44/100 MG/MM2 ON DAY 1,3,5
     Dates: start: 2020, end: 20201204

REACTIONS (4)
  - Cerebral haemorrhage [Fatal]
  - Hospitalisation [Unknown]
  - Acute myocardial infarction [Recovering/Resolving]
  - Thrombocytopenia [Unknown]

NARRATIVE: CASE EVENT DATE: 20201129
